FAERS Safety Report 13554602 (Version 1)
Quarter: 2017Q2

REPORT INFORMATION
  Report Type: Report from Study
  Country: US (occurrence: US)
  Receive Date: 20170517
  Receipt Date: 20170517
  Transmission Date: 20170830
  Serious: Yes (Hospitalization)
  Sender: FDA-Public Use
  Company Number: US-EISAI MEDICAL RESEARCH-EC-2016-015702

PATIENT
  Age: 75 Year
  Sex: Female
  Weight: 64 kg

DRUGS (15)
  1. LENVIMA [Suspect]
     Active Substance: LENVATINIB
     Indication: THYROID CANCER
     Route: 048
     Dates: start: 201511, end: 20161204
  2. LENVIMA [Suspect]
     Active Substance: LENVATINIB
     Route: 048
     Dates: start: 20170223, end: 2017
  3. LENVIMA [Suspect]
     Active Substance: LENVATINIB
     Dosage: UNSPECIFIED DOSE
     Route: 048
     Dates: start: 201704, end: 201704
  4. LEVOTHYROXINE. [Concomitant]
     Active Substance: LEVOTHYROXINE
  5. ELIQUIS [Concomitant]
     Active Substance: APIXABAN
  6. FLUOXETINE [Concomitant]
     Active Substance: FLUOXETINE HYDROCHLORIDE
  7. LENVIMA [Suspect]
     Active Substance: LENVATINIB
     Route: 048
     Dates: start: 201605, end: 2016
  8. LENVIMA [Suspect]
     Active Substance: LENVATINIB
     Dosage: 14 MG ALTERNATING WITH 20 MG EVERY OTHER DAY
     Route: 048
     Dates: start: 201609, end: 2016
  9. LENVIMA [Suspect]
     Active Substance: LENVATINIB
     Route: 048
     Dates: start: 20161101, end: 20170214
  10. FUROSEMIDE. [Concomitant]
     Active Substance: FUROSEMIDE
  11. LENVIMA [Suspect]
     Active Substance: LENVATINIB
     Route: 048
     Dates: start: 20151205, end: 201605
  12. DIGOXIN. [Concomitant]
     Active Substance: DIGOXIN
  13. CARVEDILOL. [Concomitant]
     Active Substance: CARVEDILOL
  14. LENVIMA [Suspect]
     Active Substance: LENVATINIB
     Route: 048
     Dates: start: 20170407, end: 20170408
  15. LISINOPRIL AND HYDROCHLOROTHIAZIDE [Concomitant]
     Active Substance: HYDROCHLOROTHIAZIDE\LISINOPRIL

REACTIONS (41)
  - Thyroglobulin increased [Recovered/Resolved]
  - Insomnia [Unknown]
  - Blood thyroid stimulating hormone increased [Recovered/Resolved]
  - Retching [Recovered/Resolved]
  - Chest pain [Recovered/Resolved]
  - Alopecia [Unknown]
  - Somnolence [Recovered/Resolved]
  - Syncope [Recovered/Resolved]
  - Fall [Recovered/Resolved]
  - Tinnitus [Recovered/Resolved]
  - Dizziness [Recovered/Resolved]
  - Memory impairment [Recovered/Resolved]
  - Malaise [Recovered/Resolved]
  - Peripheral swelling [Recovered/Resolved]
  - Headache [Unknown]
  - Diarrhoea [Recovered/Resolved]
  - Blood glucose increased [Recovered/Resolved]
  - Pulmonary congestion [Recovered/Resolved]
  - Cough [Recovered/Resolved]
  - Oral pain [Recovered/Resolved]
  - Cardiac flutter [Recovered/Resolved]
  - Tongue disorder [Recovered/Resolved]
  - Faeces pale [Recovered/Resolved]
  - Confusional state [Recovered/Resolved]
  - Hyperhidrosis [Recovered/Resolved]
  - Asthenia [Recovered/Resolved]
  - Pleural effusion [Recovered/Resolved]
  - Vomiting [Recovered/Resolved]
  - Nausea [Recovered/Resolved]
  - Decreased appetite [Recovered/Resolved]
  - Blood pressure increased [Recovering/Resolving]
  - Abdominal discomfort [Recovered/Resolved]
  - Wheezing [Recovered/Resolved]
  - Fatigue [Unknown]
  - Dry mouth [Unknown]
  - Dyspnoea [Recovered/Resolved]
  - Pain of skin [Unknown]
  - Gait disturbance [Recovered/Resolved]
  - Depression [Recovered/Resolved]
  - Anxiety [Recovered/Resolved]
  - Dyspepsia [Recovered/Resolved]

NARRATIVE: CASE EVENT DATE: 2016
